FAERS Safety Report 7342688-1 (Version None)
Quarter: 2011Q1

REPORT INFORMATION
  Report Type: 
  Country: None (occurrence: None)
  Receive Date: 20110310
  Receipt Date: 20110309
  Transmission Date: 20110831
  Serious: Yes (Hospitalization)
  Sender: FDA-Public Use
  Company Number: TW-PFIZER INC-2011017275

PATIENT
  Age: 86 Year
  Sex: Male

DRUGS (1)
  1. SUTENT [Suspect]
     Indication: GASTROINTESTINAL STROMAL TUMOUR
     Dosage: 2 TABS, DAILY
     Dates: start: 20100701, end: 20101101

REACTIONS (2)
  - PNEUMONIA [None]
  - OEDEMA PERIPHERAL [None]
